FAERS Safety Report 4355962-8 (Version None)
Quarter: 2004Q2

REPORT INFORMATION
  Report Type: 
  Country: None (occurrence: None)
  Receive Date: 20040505
  Receipt Date: 20040428
  Transmission Date: 20050107
  Serious: Yes (Other)
  Sender: FDA-Public Use
  Company Number: 200412103BCC

PATIENT
  Age: 48 Year
  Sex: Female
  Weight: 61.2356 kg

DRUGS (1)
  1. ALEVE (CAPLET) [Suspect]
     Indication: ANALGESIC EFFECT
     Dosage: 440 MG, ORAL
     Route: 048
     Dates: start: 20020901, end: 20021101

REACTIONS (1)
  - HEPATIC CIRRHOSIS [None]
